FAERS Safety Report 4514255-6 (Version None)
Quarter: 2004Q4

REPORT INFORMATION
  Report Type: 
  Country: None (occurrence: None)
  Receive Date: 20041124
  Receipt Date: 20041105
  Transmission Date: 20050328
  Serious: Yes (Death)
  Sender: FDA-Public Use
  Company Number: EWC040840254

PATIENT
  Age: 59 Year
  Sex: Male

DRUGS (3)
  1. XIGRIS [Suspect]
     Indication: SEPSIS
     Dosage: 24 UG/KG/HR
     Dates: start: 20040710
  2. VASOPRESSORS [Concomitant]
  3. ANTIBIOTICS [Concomitant]

REACTIONS (4)
  - ANAL FISTULA [None]
  - CARDIAC ARREST [None]
  - MULTI-ORGAN FAILURE [None]
  - SEPSIS [None]
